FAERS Safety Report 13519140 (Version 1)
Quarter: 2017Q2

REPORT INFORMATION
  Report Type: Report from Study
  Country: US (occurrence: US)
  Receive Date: 20170505
  Receipt Date: 20170505
  Transmission Date: 20170830
  Serious: Yes (Death, Other)
  Sender: FDA-Public Use
  Company Number: US-LOREAL USA PRODUCTS, INC.-2017LOR00001

PATIENT
  Age: 63 Year
  Sex: Female

DRUGS (3)
  1. SKINCEUTICALS ANTIOXIDANT SERUM [Suspect]
     Active Substance: COSMETICS
     Dosage: UNK, 1X/DAY
     Dates: start: 20170323, end: 20170405
  2. SKINCEUTICALS SHEER PHYSICAL UV DEFENSE BROAD SPECTRUM SPF 50 SUNSCREEN [Suspect]
     Active Substance: TITANIUM DIOXIDE\ZINC OXIDE
     Dosage: UNK UNK, ONCE
     Dates: start: 2017, end: 2017
  3. CRYOPEN - MEDICAL DEVICE (H+O EQUIPMENTS) [Concomitant]

REACTIONS (2)
  - Myocardial infarction [Fatal]
  - Asthma [Unknown]

NARRATIVE: CASE EVENT DATE: 20170419
